FAERS Safety Report 6550112-1 (Version None)
Quarter: 2010Q1

REPORT INFORMATION
  Report Type: 
  Country: None (occurrence: None)
  Receive Date: 20100119
  Receipt Date: 20100111
  Transmission Date: 20100710
  Serious: Yes (Other)
  Sender: FDA-Public Use
  Company Number: GB-GDP-10407303

PATIENT
  Age: 62 Year
  Sex: Female

DRUGS (1)
  1. CLOBETASOL PROPIONATE [Suspect]
     Indication: VULVOVAGINITIS
     Dosage: (200 G 1X/MONTH TOPICAL)
     Route: 061

REACTIONS (7)
  - BLOOD CORTISOL DECREASED [None]
  - ECCHYMOSIS [None]
  - ERYTHEMA [None]
  - INCORRECT DRUG ADMINISTRATION DURATION [None]
  - MALAISE [None]
  - VULVOVAGINAL DISCOMFORT [None]
  - VULVOVAGINAL ERYTHEMA [None]
